FAERS Safety Report 11605341 (Version 1)
Quarter: 2015Q3

REPORT INFORMATION
  Report Type: Spontaneous
  Country: US (occurrence: US)
  Receive Date: 20150916
  Receipt Date: 20150916
  Transmission Date: 20151125
  Serious: No
  Sender: FDA-Public Use
  Company Number: US-ELI_LILLY_AND_COMPANY-US201404000657

PATIENT
  Age: 78 Year
  Sex: Male

DRUGS (20)
  1. LOVAZA [Concomitant]
     Active Substance: OMEGA-3-ACID ETHYL ESTERS
  2. HUMALOG [Suspect]
     Active Substance: INSULIN LISPRO
     Indication: TYPE 2 DIABETES MELLITUS
     Dosage: UNK UNK, TID
     Route: 065
  3. LANTUS [Concomitant]
     Active Substance: INSULIN GLARGINE
  4. ALLOPURINOL. [Concomitant]
     Active Substance: ALLOPURINOL
  5. METAMUCIL [Concomitant]
     Active Substance: PLANTAGO SEED
  6. FLUTICASONE [Concomitant]
     Active Substance: FLUTICASONE\FLUTICASONE PROPIONATE
     Route: 055
  7. HUMALOG [Suspect]
     Active Substance: INSULIN LISPRO
     Indication: TYPE 2 DIABETES MELLITUS
     Dosage: UNK UNK, TID
     Route: 065
     Dates: start: 2001
  8. POTASSIUM CHLORIDE. [Concomitant]
     Active Substance: POTASSIUM CHLORIDE
  9. FUROSEMIDE. [Concomitant]
     Active Substance: FUROSEMIDE
  10. LEVOTHYROXINE. [Concomitant]
     Active Substance: LEVOTHYROXINE
  11. VITAMIN D [Concomitant]
     Active Substance: CHOLECALCIFEROL
  12. CRESTOR [Concomitant]
     Active Substance: ROSUVASTATIN CALCIUM
  13. NIFEDIPINE. [Concomitant]
     Active Substance: NIFEDIPINE
  14. ZETIA [Concomitant]
     Active Substance: EZETIMIBE
  15. COREG [Concomitant]
     Active Substance: CARVEDILOL
  16. CENTRUM SILVER [Concomitant]
     Active Substance: VITAMINS
  17. SYMBICORT [Concomitant]
     Active Substance: BUDESONIDE\FORMOTEROL FUMARATE DIHYDRATE
  18. TESTOSTERONE. [Concomitant]
     Active Substance: TESTOSTERONE
  19. HUMALOG [Suspect]
     Active Substance: INSULIN LISPRO
     Indication: TYPE 2 DIABETES MELLITUS
     Dosage: UNK, TID
     Route: 065
  20. COENZYME Q10 [Concomitant]
     Active Substance: UBIDECARENONE

REACTIONS (7)
  - Sinusitis [Unknown]
  - Chronic obstructive pulmonary disease [Unknown]
  - Blood glucose increased [Unknown]
  - Pneumonia [Unknown]
  - Renal impairment [Unknown]
  - Gout [Unknown]
  - Drug ineffective [Unknown]

NARRATIVE: CASE EVENT DATE: 201305
